FAERS Safety Report 6391646-2 (Version None)
Quarter: 2009Q4

REPORT INFORMATION
  Report Type: 
  Country: None (occurrence: None)
  Receive Date: 20091007
  Receipt Date: 20090923
  Transmission Date: 20100525
  Serious: Yes (Other)
  Sender: FDA-Public Use
  Company Number: US-PFIZER INC-2009273655

PATIENT

DRUGS (1)
  1. DILANTIN-125 [Suspect]

REACTIONS (3)
  - DEMYELINATION [None]
  - NEUROLOGICAL SYMPTOM [None]
  - ROAD TRAFFIC ACCIDENT [None]
